FAERS Safety Report 20179732 (Version 3)
Quarter: 2023Q1

REPORT INFORMATION
  Report Type: Report from Study
  Country: CA (occurrence: CA)
  Receive Date: 20211214
  Receipt Date: 20230314
  Transmission Date: 20230417
  Serious: Yes (Other)
  Sender: FDA-Public Use
  Company Number: CA-ABBVIE-21K-028-4195334-00

PATIENT
  Age: 52 Year
  Sex: Male

DRUGS (1)
  1. SKYRIZI [Suspect]
     Active Substance: RISANKIZUMAB-RZAA
     Indication: Psoriasis
     Route: 058
     Dates: start: 20200804

REACTIONS (8)
  - Chemotherapy [Unknown]
  - Malaise [Recovering/Resolving]
  - Fatigue [Recovering/Resolving]
  - Colon cancer recurrent [Recovering/Resolving]
  - Psoriasis [Unknown]
  - Acne [Unknown]
  - Blood glucose abnormal [Unknown]
  - Dehydration [Unknown]

NARRATIVE: CASE EVENT DATE: 20211208
